FAERS Safety Report 4877663-X (Version None)
Quarter: 2006Q1

REPORT INFORMATION
  Report Type: 
  Country: None (occurrence: None)
  Receive Date: 20060111
  Receipt Date: 20060102
  Transmission Date: 20060701
  Serious: Yes (Disabling)
  Sender: FDA-Public Use
  Company Number: DK-JNJFOC-20060100144

PATIENT
  Sex: Female
  Weight: 54 kg

DRUGS (4)
  1. RISPERDAL [Suspect]
     Indication: SCHIZOPHRENIA
     Dosage: 9MG TOTAL DAILY
     Route: 048
  2. AKINITON [Concomitant]
     Route: 065
     Dates: end: 20050803
  3. TRUXAL [Concomitant]
     Route: 065
  4. OXAPAX [Concomitant]
     Route: 065

REACTIONS (5)
  - ANXIETY [None]
  - NERVOUSNESS [None]
  - SOCIAL PHOBIA [None]
  - TREMOR [None]
  - WEIGHT DECREASED [None]
